FAERS Safety Report 8954823 (Version 1)
Quarter: 2012Q4

REPORT INFORMATION
  Report Type: Spontaneous
  Country: DE (occurrence: None)
  Receive Date: 20121130
  Receipt Date: 20121130
  Transmission Date: 20130627
  Serious: Yes (Hospitalization)
  Sender: FDA-Public Use
  Company Number: GER/GER/12/0026783

PATIENT
  Age: 82 Year
  Sex: Female

DRUGS (4)
  1. CIPROFLOXACIN (CIPROFLOXACIN) [Suspect]
     Dosage: 500 mg,  1 in 1 D,  Oral
     Route: 048
     Dates: start: 20120627, end: 20120701
  2. CYMBALTA [Suspect]
     Dosage: 30 mg,  1 in 1 D,  Oral
     Route: 048
     Dates: start: 20120627, end: 20120630
  3. CYMBALTA [Suspect]
     Dosage: 60 mg,  1 in 1 D,  Oral
     Route: 048
     Dates: start: 20120701, end: 20120702
  4. HALDOL [Suspect]
     Dosage: 0.5 mg,  1 in 1 D,  Oral
     Route: 048
     Dates: start: 20120629, end: 20120701

REACTIONS (5)
  - Hyponatraemia [None]
  - Vomiting [None]
  - General physical health deterioration [None]
  - Drug interaction [None]
  - Inappropriate antidiuretic hormone secretion [None]
